FAERS Safety Report 20789764 (Version 1)
Quarter: 2022Q2

REPORT INFORMATION
  Report Type: Report from Study
  Country: IE (occurrence: IE)
  Receive Date: 20220505
  Receipt Date: 20220505
  Transmission Date: 20220721
  Serious: Yes (Other)
  Sender: FDA-Public Use
  Company Number: IE-AMGEN-IRLSL2022073181

PATIENT
  Sex: Female

DRUGS (13)
  1. ARANESP [Suspect]
     Active Substance: DARBEPOETIN ALFA
     Indication: Product used for unknown indication
     Dosage: 40 MICROGRAM, Q2WK
     Route: 058
     Dates: start: 20220419
  2. ZOPICLONE [Concomitant]
     Active Substance: ZOPICLONE
     Dosage: 3.75 MILLIGRAM, QD
     Route: 050
  3. OLANZAPINE [Concomitant]
     Active Substance: OLANZAPINE
     Dosage: 2.5 MILLIGRAM, QD
     Route: 050
  4. PAROXETINE HYDROCHLORIDE [Concomitant]
     Active Substance: PAROXETINE HYDROCHLORIDE
     Dosage: 30 MILLIGRAM, QD
     Route: 050
  5. MIRTAZAPINE [Concomitant]
     Active Substance: MIRTAZAPINE
     Dosage: 30 MILLIGRAM, QD
  6. FLUPENTIXOL [Concomitant]
     Active Substance: FLUPENTIXOL
     Dosage: 0.5 MILLIGRAM, QD
     Route: 050
  7. CLONFOLIC [Concomitant]
     Dosage: 0.4 MILLIGRAM, QD
     Route: 050
  8. LESTACE [Concomitant]
     Dosage: 5 MILLIGRAM, QD
     Route: 050
  9. PRAMIPEXOLE [Concomitant]
     Active Substance: PRAMIPEXOLE
     Dosage: 0.088 MILLIGRAM, QD
     Route: 050
  10. LAMICTAL [Concomitant]
     Active Substance: LAMOTRIGINE
     Dosage: 50 MILLIGRAM, QD
     Route: 050
  11. LAMICTAL [Concomitant]
     Active Substance: LAMOTRIGINE
     Dosage: 25 MILLIGRAM, QD
     Route: 050
  12. LEVOTHYROXINE [Concomitant]
     Active Substance: LEVOTHYROXINE
     Dosage: 50 MILLIGRAM, QD
     Route: 050
  13. EPILIM [Concomitant]
     Active Substance: VALPROATE SODIUM
     Dosage: 500.3 MILLIGRAM, QD
     Route: 050

REACTIONS (1)
  - Dialysis [Unknown]
